FAERS Safety Report 9068716 (Version 1)
Quarter: 2013Q1

REPORT INFORMATION
  Report Type: Spontaneous
  Country: US (occurrence: None)
  Receive Date: 20130212
  Receipt Date: 20130212
  Transmission Date: 20140127
  Serious: Yes (Other)
  Sender: FDA-Public Use
  Company Number: None

PATIENT
  Age: 52 Year
  Sex: Female
  Weight: 77.11 kg

DRUGS (1)
  1. LUPRON [Suspect]
     Indication: BREAST CANCER
     Dosage: INJECTION  MONTHLY
     Dates: start: 20130115

REACTIONS (1)
  - Herpes zoster [None]
